FAERS Safety Report 15838961 (Version 2)
Quarter: 2019Q1

REPORT INFORMATION
  Report Type: Report from Study
  Country: ES (occurrence: ES)
  Receive Date: 20190117
  Receipt Date: 20190121
  Transmission Date: 20190417
  Serious: Yes (Hospitalization)
  Sender: FDA-Public Use
  Company Number: ES-BAYER-2019-007158

PATIENT
  Age: 89 Year
  Sex: Female

DRUGS (11)
  1. VALSARTAN HIDROCLOROTIAZIDA TORRENT [Concomitant]
     Dosage: UNK
  2. ACETYLSALICYLIC ACID [Concomitant]
     Active Substance: ASPIRIN
  3. CARDYL [Concomitant]
     Active Substance: ATORVASTATIN CALCIUM
     Dosage: UNK
  4. MADOPAR [Concomitant]
     Active Substance: BENSERAZIDE HYDROCHLORIDE\LEVODOPA
     Dosage: UNK
  5. FERPLEX [Concomitant]
  6. REPAGLINIDE. [Concomitant]
     Active Substance: REPAGLINIDE
  7. MUPIROCINA [MUPIROCIN] [Concomitant]
  8. OMEPRAZOL [OMEPRAZOLE] [Concomitant]
  9. ADIRO 100 MG GASTRO-RESISTANT TABLETS EFG [Suspect]
     Active Substance: ASPIRIN
     Indication: CEREBROVASCULAR DISORDER
     Dosage: 100 MG, QD
     Route: 048
     Dates: start: 2018, end: 20180806
  10. MOTILIUM [Concomitant]
     Active Substance: DOMPERIDONE
  11. SOMAZINA [CITICOLINE] [Concomitant]

REACTIONS (2)
  - Iron deficiency anaemia [Recovering/Resolving]
  - Gastrointestinal haemorrhage [Recovering/Resolving]

NARRATIVE: CASE EVENT DATE: 20180806
